FAERS Safety Report 5005991-6 (Version None)
Quarter: 2006Q2

REPORT INFORMATION
  Report Type: 
  Country: None (occurrence: None)
  Receive Date: 20060516
  Receipt Date: 20060501
  Transmission Date: 20061013
  Serious: Yes (Death, Hospitalization)
  Sender: FDA-Public Use
  Company Number: A-US2006-12201

PATIENT
  Age: 28 Year
  Sex: Male

DRUGS (4)
  1. TRACLEER [Suspect]
     Indication: PULMONARY HYPERTENSION
     Dosage: 125 MG BID ORAL
     Route: 048
     Dates: start: 20021110, end: 20060419
  2. COUMADIN [Concomitant]
  3. ADVAIR DISKUS 100/50 [Concomitant]
  4. FLOVENT [Concomitant]

REACTIONS (4)
  - CARDIAC FAILURE [None]
  - HAEMOPTYSIS [None]
  - LUNG DISORDER [None]
  - RESPIRATORY FAILURE [None]
